FAERS Safety Report 9772465 (Version 1)
Quarter: 2013Q4

REPORT INFORMATION
  Report Type: Spontaneous
  Country: TR (occurrence: TR)
  Receive Date: 20131219
  Receipt Date: 20131219
  Transmission Date: 20140711
  Serious: Yes (Other)
  Sender: FDA-Public Use
  Company Number: TR-MYLANLABS-2013S1027719

PATIENT
  Age: 15 Year
  Sex: Female

DRUGS (1)
  1. ISOTRETINOIN [Suspect]
     Indication: ACNE CYSTIC
     Route: 065

REACTIONS (5)
  - Rectal haemorrhage [Recovering/Resolving]
  - Anal fissure [Recovering/Resolving]
  - Cheilitis [Recovering/Resolving]
  - Xerosis [Recovering/Resolving]
  - Epistaxis [Recovering/Resolving]
